FAERS Safety Report 5794774-5 (Version None)
Quarter: 2008Q2

REPORT INFORMATION
  Report Type: 
  Country: None (occurrence: None)
  Receive Date: 20080627
  Receipt Date: 20080627
  Transmission Date: 20081010
  Serious: Yes (Hospitalization)
  Sender: FDA-Public Use
  Company Number: None

PATIENT
  Sex: Female
  Weight: 73 kg

DRUGS (2)
  1. LAPATINIB [Suspect]
     Dosage: 1200 MG DAILY PO
     Route: 048
     Dates: start: 20080612
  2. CAPECITABINE [Suspect]
     Dosage: 3600 MG DAILY PO
     Route: 048

REACTIONS (5)
  - ABDOMINAL PAIN [None]
  - CONSTIPATION [None]
  - NAUSEA [None]
  - ONCOLOGIC COMPLICATION [None]
  - VOMITING [None]
